FAERS Safety Report 15467433 (Version 1)
Quarter: 2018Q4

REPORT INFORMATION
  Report Type: Report from Study
  Country: US (occurrence: US)
  Receive Date: 20181005
  Receipt Date: 20181005
  Transmission Date: 20190204
  Serious: Yes (Hospitalization, Other)
  Sender: FDA-Public Use
  Company Number: US-ROCHE-2193544

PATIENT
  Age: 63 Year
  Sex: Female

DRUGS (1)
  1. ACTEMRA [Suspect]
     Active Substance: TOCILIZUMAB
     Indication: RHEUMATOID ARTHRITIS
     Dosage: ONGOING: UNKNOWN
     Route: 058

REACTIONS (6)
  - Pneumonia [Unknown]
  - Malaise [Unknown]
  - Vomiting [Unknown]
  - Hyperhidrosis [Unknown]
  - Bronchitis [Unknown]
  - Feeling hot [Unknown]

NARRATIVE: CASE EVENT DATE: 201808
